FAERS Safety Report 8835403 (Version 3)
Quarter: 2013Q4

REPORT INFORMATION
  Report Type: Spontaneous
  Country: US (occurrence: US)
  Receive Date: 20121011
  Receipt Date: 20131231
  Transmission Date: 20140711
  Serious: Yes (Hospitalization, Other)
  Sender: FDA-Public Use
  Company Number: US-BAYER-2012-104124

PATIENT
  Age: 36 Year
  Sex: Female
  Weight: 66 kg

DRUGS (9)
  1. YAZ [Suspect]
     Indication: OVARIAN CYST
     Dosage: UNK
     Dates: start: 200609, end: 200802
  2. AMITRIPTYLINE [Concomitant]
  3. LISINOPRIL [Concomitant]
  4. ROXICET [Concomitant]
  5. DIAZEPAM [Concomitant]
  6. DICYCLOMINE [Concomitant]
  7. MARCAINE [Concomitant]
     Dosage: 5% 20 CC
     Dates: start: 20080214
  8. LIDOCAINE [Concomitant]
     Dosage: 1% 50 CC
     Dates: start: 20080214
  9. SODIUM BICARBONATE [Concomitant]
     Dosage: 5 CC
     Dates: start: 20080214

REACTIONS (13)
  - Pulmonary embolism [None]
  - Deep vein thrombosis [None]
  - Thrombophlebitis superficial [Recovered/Resolved]
  - Deep vein thrombosis [Recovered/Resolved]
  - Myocardial infarction [None]
  - Cerebrovascular accident [None]
  - Gallbladder disorder [None]
  - Pain [None]
  - Injury [None]
  - Anxiety [None]
  - Anhedonia [None]
  - Fear [None]
  - Mental disorder [None]
